FAERS Safety Report 4605772-9 (Version None)
Quarter: 2005Q1

REPORT INFORMATION
  Report Type: 
  Country: None (occurrence: None)
  Receive Date: 20050115
  Receipt Date: 20040107
  Transmission Date: 20050727
  Serious: Yes (Other)
  Sender: FDA-Public Use
  Company Number: A03200400035

PATIENT
  Age: 60 Year
  Sex: Female

DRUGS (3)
  1. AMBIEN [Suspect]
     Indication: SOMNOLENCE
     Dosage: 10 MG PRN - ORAL
     Route: 048
     Dates: start: 20010101, end: 20040106
  2. BUTALBITAL / ASPIRIN [Concomitant]
  3. ESCITALOPRAM OXALATE [Concomitant]

REACTIONS (3)
  - AMNESIA [None]
  - HALLUCINATION, VISUAL [None]
  - SLEEP WALKING [None]
